FAERS Safety Report 7489460-X (Version None)
Quarter: 2011Q2

REPORT INFORMATION
  Report Type: 
  Country: None (occurrence: None)
  Receive Date: 20110518
  Receipt Date: 20110518
  Transmission Date: 20111010
  Serious: Yes (Hospitalization)
  Sender: FDA-Public Use
  Company Number: US-ABBOTT-93P-163-0035513-00

PATIENT
  Age: 48 Year
  Sex: Male
  Weight: 68.1 kg

DRUGS (2)
  1. NONE [Concomitant]
  2. TRANXENE [Suspect]
     Indication: ANXIETY
     Route: 048
     Dates: start: 19921111

REACTIONS (60)
  - WITHDRAWAL SYNDROME [None]
  - VISION BLURRED [None]
  - MUSCULOSKELETAL PAIN [None]
  - PALPITATIONS [None]
  - ABDOMINAL DISTENSION [None]
  - RASH [None]
  - RESTLESS LEGS SYNDROME [None]
  - EYE PAIN [None]
  - AMNESIA [None]
  - INFLUENZA LIKE ILLNESS [None]
  - HYPERHIDROSIS [None]
  - DISORIENTATION [None]
  - PANIC ATTACK [None]
  - DIZZINESS [None]
  - EYE MOVEMENT DISORDER [None]
  - MORBID THOUGHTS [None]
  - SENSATION OF HEAVINESS [None]
  - TENSION HEADACHE [None]
  - NIGHTMARE [None]
  - PSYCHIATRIC SYMPTOM [None]
  - DEPRESSION [None]
  - INSOMNIA [None]
  - PAIN [None]
  - DROOLING [None]
  - MUSCLE SPASMS [None]
  - FEELING COLD [None]
  - NERVOUSNESS [None]
  - ERECTILE DYSFUNCTION [None]
  - DYSPEPSIA [None]
  - PARAESTHESIA [None]
  - HALLUCINATION [None]
  - MYALGIA [None]
  - VISUAL IMPAIRMENT [None]
  - ILL-DEFINED DISORDER [None]
  - FEELING ABNORMAL [None]
  - DISTURBANCE IN ATTENTION [None]
  - SINUS DISORDER [None]
  - MUSCLE TWITCHING [None]
  - ANGER [None]
  - FATIGUE [None]
  - VERTIGO [None]
  - FOOD ALLERGY [None]
  - NECK PAIN [None]
  - NAIL DISCOLOURATION [None]
  - PHOTOPHOBIA [None]
  - FEAR [None]
  - TINNITUS [None]
  - EAR PAIN [None]
  - PRURITUS GENERALISED [None]
  - CHEST PAIN [None]
  - DYSGEUSIA [None]
  - SUICIDAL IDEATION [None]
  - ASTHENOPIA [None]
  - HYPOAESTHESIA [None]
  - VIOLENCE-RELATED SYMPTOM [None]
  - ABDOMINAL PAIN UPPER [None]
  - HYPERACUSIS [None]
  - ARTHRALGIA [None]
  - BRUXISM [None]
  - PAIN IN JAW [None]
